FAERS Safety Report 5809436-5 (Version None)
Quarter: 2008Q3

REPORT INFORMATION
  Report Type: 
  Country: None (occurrence: None)
  Receive Date: 20080709
  Receipt Date: 20080627
  Transmission Date: 20090109
  Serious: Yes (Hospitalization)
  Sender: FDA-Public Use
  Company Number: 001638

PATIENT
  Age: 32 Year
  Sex: Female

DRUGS (7)
  1. BUSULFEX [Suspect]
     Indication: STEM CELL TRANSPLANT
     Dosage: 22.5 ML, INTRAVENOUS; 9 ML; INTRAVENOUS; 36 ML, INTRAVENOUS
     Route: 042
     Dates: start: 20070903, end: 20070903
  2. BUSULFEX [Suspect]
     Indication: STEM CELL TRANSPLANT
     Dosage: 22.5 ML, INTRAVENOUS; 9 ML; INTRAVENOUS; 36 ML, INTRAVENOUS
     Route: 042
     Dates: start: 20070904, end: 20070906
  3. CYCLOPHOSPHAMIDE [Concomitant]
  4. VALPROATE SODIUM [Concomitant]
  5. NEUPOGEN [Concomitant]
  6. METHOTREXATE [Concomitant]
  7. CYCLOSPORINE [Concomitant]

REACTIONS (10)
  - ACUTE GRAFT VERSUS HOST DISEASE [None]
  - ANOREXIA [None]
  - CYSTITIS HAEMORRHAGIC [None]
  - CYTOMEGALOVIRUS VIRAEMIA [None]
  - DIABETES MELLITUS [None]
  - DIARRHOEA [None]
  - ESCHERICHIA SEPSIS [None]
  - MALAISE [None]
  - NAUSEA [None]
  - STAPHYLOCOCCAL SEPSIS [None]
